FAERS Safety Report 13263342 (Version 1)
Quarter: 2017Q1

REPORT INFORMATION
  Report Type: Spontaneous
  Country: None (occurrence: US)
  Receive Date: 20170222
  Receipt Date: 20170222
  Transmission Date: 20170428
  Serious: Yes (Hospitalization)
  Sender: FDA-Public Use
  Company Number: None

PATIENT
  Sex: Male
  Weight: 75.8 kg

DRUGS (3)
  1. METFORMIN HYDROCHLORIDE. [Suspect]
     Active Substance: METFORMIN HYDROCHLORIDE
     Dates: end: 20170208
  2. TAXOL [Suspect]
     Active Substance: PACLITAXEL
     Dates: end: 20170131
  3. CARBOPLATIN. [Suspect]
     Active Substance: CARBOPLATIN
     Dates: end: 20170103

REACTIONS (3)
  - Atrial fibrillation [None]
  - Pneumonia [None]
  - Chest pain [None]

NARRATIVE: CASE EVENT DATE: 20170115
